APPROVED DRUG PRODUCT: MUCOMYST W/ ISOPROTERENOL
Active Ingredient: ACETYLCYSTEINE; ISOPROTERENOL HYDROCHLORIDE
Strength: 10%;0.05%
Dosage Form/Route: SOLUTION;INHALATION
Application: N017366 | Product #001
Applicant: MEAD JOHNSON AND CO SUB BRISTOL MYERS CO
Approved: Approved Prior to Jan 1, 1982 | RLD: No | RS: No | Type: DISCN